FAERS Safety Report 4633581-3 (Version None)
Quarter: 2005Q2

REPORT INFORMATION
  Report Type: 
  Country: None (occurrence: None)
  Receive Date: 20050411
  Receipt Date: 20050411
  Transmission Date: 20051028
  Serious: Yes (Other)
  Sender: FDA-Public Use
  Company Number: None

PATIENT
  Age: 35 Year
  Sex: Female
  Weight: 49.8957 kg

DRUGS (1)
  1. TRIAD [Suspect]
     Indication: LIPOSUCTION
     Dosage: TOPICALLY
     Route: 061
     Dates: start: 20040617

REACTIONS (5)
  - GRANULOMA [None]
  - POST PROCEDURAL COMPLICATION [None]
  - SCAR [None]
  - SKIN DISCOLOURATION [None]
  - SKIN NECROSIS [None]
